FAERS Safety Report 10212965 (Version 2)
Quarter: 2014Q2

REPORT INFORMATION
  Report Type: Report from Study
  Country: BR (occurrence: BR)
  Receive Date: 20140602
  Receipt Date: 20140602
  Transmission Date: 20141212
  Serious: Yes (Other)
  Sender: FDA-Public Use
  Company Number: PHHY2014BR048850

PATIENT
  Sex: Male
  Weight: 78 kg

DRUGS (5)
  1. GILENYA [Suspect]
     Indication: MULTIPLE SCLEROSIS
     Dosage: 0.5 MG, QD
     Route: 048
     Dates: start: 20140210
  2. EXODUS//ESCITALOPRAM OXALATE [Concomitant]
     Indication: DEPRESSION
     Dosage: 1 DF, QD
     Route: 048
  3. RIVOTRIL [Concomitant]
     Indication: INSOMNIA
     Dosage: 7 DRP, NIGHT
     Route: 048
  4. BACLOFEN [Concomitant]
     Dosage: 1 DF, QD
     Route: 048
     Dates: start: 201402
  5. LEVOTHYROXINE [Concomitant]
     Indication: THYROID DISORDER
     Dosage: 1 DF, QD
     Route: 048

REACTIONS (6)
  - Central nervous system lesion [Unknown]
  - Confusional state [Recovered/Resolved]
  - Sleep disorder [Recovered/Resolved]
  - Snoring [Recovering/Resolving]
  - Tremor [Recovered/Resolved]
  - Diarrhoea [Recovered/Resolved]
